FAERS Safety Report 4375092-9 (Version None)
Quarter: 2004Q2

REPORT INFORMATION
  Report Type: 
  Country: None (occurrence: None)
  Receive Date: 20040607
  Receipt Date: 20030619
  Transmission Date: 20050107
  Serious: Yes (Other)
  Sender: FDA-Public Use
  Company Number: 340633

PATIENT
  Sex: Female

DRUGS (2)
  1. ACCUTANE [Suspect]
     Indication: ACNE CYSTIC
     Dosage: 40 MG DAILY ORAL
     Route: 048
     Dates: start: 19981215, end: 19990615
  2. VITAMINS (MULTIVITAMINS NOS) [Concomitant]

REACTIONS (5)
  - ADVERSE EVENT [None]
  - NO ADVERSE DRUG EFFECT [None]
  - NO ADVERSE EFFECT [None]
  - NORMAL NEWBORN [None]
  - PREGNANCY [None]
